FAERS Safety Report 8294306-6 (Version None)
Quarter: 2012Q2

REPORT INFORMATION
  Report Type: 
  Country: None (occurrence: None)
  Receive Date: 20120418
  Receipt Date: 20120409
  Transmission Date: 20120825
  Serious: No
  Sender: FDA-Public Use
  Company Number: JP-SANOFI-AVENTIS-2012SA018283

PATIENT
  Age: 76 Year
  Sex: Male
  Weight: 51.5 kg

DRUGS (7)
  1. HUMALOG [Suspect]
     Indication: TYPE 2 DIABETES MELLITUS
     Dosage: DOSE:10-2-4 UNITS
     Route: 058
     Dates: start: 20120224, end: 20120309
  2. ZANTAC [Concomitant]
     Route: 048
  3. LANTUS [Suspect]
     Indication: TYPE 2 DIABETES MELLITUS
     Dosage: DOSE:6 UNIT(S)
     Route: 058
     Dates: start: 20120224, end: 20120308
  4. UROLOGICALS [Concomitant]
     Route: 048
  5. ASPIRIN [Concomitant]
     Route: 048
  6. SOLOSTAR [Suspect]
     Indication: DEVICE THERAPY
     Dates: start: 20120224, end: 20120308
  7. ATORVASTATIN [Concomitant]
     Route: 048

REACTIONS (5)
  - URTICARIA [None]
  - ERYTHEMA MULTIFORME [None]
  - ECZEMA [None]
  - RASH MACULO-PAPULAR [None]
  - PRURITUS [None]
